FAERS Safety Report 4478921-3 (Version None)
Quarter: 2004Q4

REPORT INFORMATION
  Report Type: 
  Country: None (occurrence: None)
  Receive Date: 20041014
  Receipt Date: 20041001
  Transmission Date: 20050328
  Serious: Yes (Hospitalization)
  Sender: FDA-Public Use
  Company Number: 2004074582

PATIENT
  Age: 28 Year
  Sex: Male

DRUGS (3)
  1. VIRACEPT [Suspect]
     Indication: HIV TEST POSITIVE
     Dates: start: 19980101, end: 20040712
  2. TENOFOVIR DISOPROXIL FUMARATE (TENOFOVIR DISOPROXIL FUMARATE) [Concomitant]
     Indication: HIV TEST POSITIVE
     Dates: start: 19980101
  3. LAMIVUDINE (LAMIVUDINE) [Concomitant]

REACTIONS (13)
  - ABDOMINAL PAIN UPPER [None]
  - ANOREXIA [None]
  - ASTHENIA [None]
  - BLOOD IMMUNOGLOBULIN G INCREASED [None]
  - CYTOLYTIC HEPATITIS [None]
  - CYTOMEGALOVIRUS ANTIBODY POSITIVE [None]
  - EPSTEIN-BARR VIRUS ANTIBODY POSITIVE [None]
  - GASTROOESOPHAGEAL REFLUX DISEASE [None]
  - HERPES SIMPLEX SEROLOGY POSITIVE [None]
  - NAUSEA [None]
  - SPLENOMEGALY [None]
  - VERTIGO [None]
  - WEIGHT DECREASED [None]
